FAERS Safety Report 7194860 (Version 3)
Quarter: 2012Q4

REPORT INFORMATION
  Report Type: Spontaneous
  Country: None (occurrence: None)
  Receive Date: 20091113
  Receipt Date: 20120924
  Transmission Date: 20130627
  Serious: Yes (Hospitalization, Other)
  Sender: FDA-Public Use
  Company Number: AUR-APL-2009-01128

PATIENT
  Age: 37 Year
  Sex: Male

DRUGS (7)
  1. AMOXICILLIN [Suspect]
     Indication: TOOTH INFECTION
  2. CIPROFLOXACIN (CIPROFLOXACIN) [Suspect]
     Indication: NEUTROPENIC SEPSIS
     Dates: start: 2008, end: 2008
  3. METRONIDAZOLE (METRONIDAZOLE) [Suspect]
     Indication: NEUTROPENIC SEPSIS
     Dates: start: 2008, end: 2008
  4. TAZOCIN (PIP/TAZO) [Suspect]
     Indication: NEUTROPENIC SEPSIS
     Dates: start: 2008, end: 2008
  5. CLINDAMYCIN HCL [Suspect]
     Indication: NEUTROPENIC SEPSIS
     Dates: start: 2008, end: 2008
  6. GENTAMICIN [Suspect]
     Indication: NEUTROPENIC SEPSIS
     Dates: start: 2008, end: 2008
  7. PREDNISOLONE (PREDNISOLONE) [Concomitant]

REACTIONS (10)
  - Drug reaction with eosinophilia and systemic symptoms [None]
  - Cyanosis [None]
  - Neutropenia [None]
  - Acute respiratory distress syndrome [None]
  - Pneumonitis [None]
  - Hepatic failure [None]
  - Renal failure [None]
  - Hypotension [None]
  - White blood cell count decreased [None]
  - Eosinophil count decreased [None]
